FAERS Safety Report 6663119-0 (Version None)
Quarter: 2010Q2

REPORT INFORMATION
  Report Type: 
  Country: None (occurrence: None)
  Receive Date: 20100401
  Receipt Date: 20100330
  Transmission Date: 20101027
  Serious: Yes (Hospitalization)
  Sender: FDA-Public Use
  Company Number: US-SANOFI-AVENTIS-2010SA003623

PATIENT

DRUGS (5)
  1. MULTAQ [Suspect]
     Indication: ATRIAL FIBRILLATION
     Route: 048
     Dates: start: 20090101
  2. ASPIRIN [Concomitant]
  3. PLAVIX [Concomitant]
  4. BETA BLOCKING AGENTS [Concomitant]
  5. ACE INHIBITOR NOS [Concomitant]

REACTIONS (2)
  - ACUTE PULMONARY OEDEMA [None]
  - EJECTION FRACTION DECREASED [None]
